FAERS Safety Report 6692195-4 (Version None)
Quarter: 2010Q2

REPORT INFORMATION
  Report Type: 
  Country: None (occurrence: None)
  Receive Date: 20100422
  Receipt Date: 20100419
  Transmission Date: 20101027
  Serious: Yes (Hospitalization)
  Sender: FDA-Public Use
  Company Number: US-BRISTOL-MYERS SQUIBB COMPANY-15059421

PATIENT
  Age: 73 Year
  Sex: Male
  Weight: 71 kg

DRUGS (5)
  1. CETUXIMAB [Suspect]
     Indication: LIP AND/OR ORAL CAVITY CANCER
     Dosage: 400MG/M2:720MG 250MG/M2:450MG,WK-2-8;INDUCTION WEEKLY
     Route: 042
     Dates: start: 20100405
  2. CISPLATIN [Suspect]
     Indication: LIP AND/OR ORAL CAVITY CANCER
     Dosage: EVERY 21 DAYS X 2 DOSE
     Route: 042
     Dates: start: 20100322
  3. TAXOL [Suspect]
     Indication: LIP AND/OR ORAL CAVITY CANCER
     Dosage: 100MG/M2:180MG,WK:1-3,WK 4-7
  4. CARBOPLATIN [Suspect]
     Indication: LIP AND/OR ORAL CAVITY CANCER
     Dosage: AUC 6;WK:1+4
  5. RADIATION THERAPY [Suspect]
     Dosage: 01MAR, 24MAR + 25MAR2010;INTERRUPTED ON 08-MAR-2010,HELD UNTIL 14APR,LAST 3 DOSE:14+15APR10
     Dates: start: 20100308, end: 20100415

REACTIONS (2)
  - DERMATITIS [None]
  - MUCOSAL INFLAMMATION [None]
